FAERS Safety Report 10342062 (Version 2)
Quarter: 2014Q3

REPORT INFORMATION
  Report Type: Spontaneous
  Country: GB (occurrence: GB)
  Receive Date: 20140725
  Receipt Date: 20140725
  Transmission Date: 20150326
  Serious: Yes (Other)
  Sender: FDA-Public Use
  Company Number: GB-NOVOPROD-416152

PATIENT
  Age: 84 Year
  Sex: Male

DRUGS (1)
  1. NOVORAPID [Suspect]
     Active Substance: INSULIN ASPART
     Indication: DIABETES MELLITUS
     Dosage: UNKNOWN
     Route: 065

REACTIONS (4)
  - Myalgia [Unknown]
  - Product colour issue [Unknown]
  - Prostate cancer [Unknown]
  - Acne [Unknown]

NARRATIVE: CASE EVENT DATE: 201306
